FAERS Safety Report 19423582 (Version 1)
Quarter: 2021Q2

REPORT INFORMATION
  Report Type: Spontaneous
  Country: NL (occurrence: FR)
  Receive Date: 20210616
  Receipt Date: 20210616
  Transmission Date: 20210717
  Serious: Yes (Hospitalization)
  Sender: FDA-Public Use
  Company Number: FR-FRESENIUS KABI-FK202106018

PATIENT
  Age: 67 Year
  Sex: Female
  Weight: 66 kg

DRUGS (13)
  1. LEVOTHYROXINE SODIUM. [Concomitant]
     Active Substance: LEVOTHYROXINE SODIUM
     Indication: PRODUCT USED FOR UNKNOWN INDICATION
     Dosage: LEVOTHYROX 100 MICROGRAMMES, SCORED TABLET?(CORNSTARCH, CROSCARMELLOSE SODIUM, GELATINE ((MAMMAL/BEE
     Route: 065
  2. MORPHINE SULFATE. [Concomitant]
     Active Substance: MORPHINE SULFATE
     Indication: PRODUCT USED FOR UNKNOWN INDICATION
     Dosage: ACTISKENAN 5 MG, CAPSULE?(CORNSTARCH, GELATINE ((MAMMAL/BEEF), HYPROMELLOSE, INDIGOTINE, SACCHAROSE,
     Route: 065
  3. MACROGOL [Concomitant]
     Active Substance: POLYETHYLENE GLYCOLS
     Indication: PRODUCT USED FOR UNKNOWN INDICATION
     Dosage: MACROGOL 4000 ARROW 4 G, POWDER FOR DRINKABLE SOLUTION IN SINGLE SERVING SACHET
     Route: 065
  4. PARACETAMOL [Concomitant]
     Active Substance: ACETAMINOPHEN
     Indication: PRODUCT USED FOR UNKNOWN INDICATION
     Dosage: DOLIPRANE 100 MG POWDER FOR DRINKABLE SOLUTION IN SINGLE SERVING SACHET ?(AROME/PERFUME, BENZOATE SO
     Route: 065
  5. PEMBROLIZUMAB. [Suspect]
     Active Substance: PEMBROLIZUMAB
     Indication: SQUAMOUS CELL CARCINOMA
     Dosage: PEMBROLIZUMAB MK?3475 50 MG POWDER FOR SOLUTION FOR INFUSION
     Route: 065
     Dates: start: 20210423
  6. ACETYLSALICYLATE LYSINE [Concomitant]
     Active Substance: ASPIRIN DL-LYSINE
     Indication: PRODUCT USED FOR UNKNOWN INDICATION
     Dosage: KARDEGIC 75 MG, POWDER FOR DRINKABLE SOLUTION IN SINGLE SERVING SACHET?(ACETYLSALICYLIC ACID, AROME/
     Route: 065
  7. MORPHINE SULFATE. [Concomitant]
     Active Substance: MORPHINE SULFATE
     Indication: PRODUCT USED FOR UNKNOWN INDICATION
     Dosage: SKENAN L.P. 30 MG, MICROGRANULE AT EXTENDED RELEASE IN CAPSULE?(CETYL ALCOHOL, CORNSTARCH, DIBUTYLE
     Route: 065
  8. CARBOPLATIN (MANUFACTURER UNKNOWN) [Suspect]
     Active Substance: CARBOPLATIN
     Indication: SQUAMOUS CELL CARCINOMA
     Route: 065
     Dates: start: 20210423
  9. FLUOROURACIL. [Suspect]
     Active Substance: FLUOROURACIL
     Indication: SQUAMOUS CELL CARCINOMA
     Route: 065
     Dates: start: 20210423
  10. CLONAZEPAM. [Concomitant]
     Active Substance: CLONAZEPAM
     Indication: PRODUCT USED FOR UNKNOWN INDICATION
     Dosage: RIVOTRIL 2,5 MG/ML, DRINKABLE SOLUTION IN DROP?(AROME/PERFUME, ACETIC (ACID), CLONAZEPAM, PROPYLENEG
     Route: 065
  11. CARBAMAZEPINE. [Concomitant]
     Active Substance: CARBAMAZEPINE
     Indication: PRODUCT USED FOR UNKNOWN INDICATION
     Dosage: TEGRETOL 200 MG SCORED TABLET?(CARBAMAZEPINE, CARMELLOSE SODIUM, CELLULOSE MICROCRISTALLINE, STEARAT
     Route: 065
  12. MORPHINE SULFATE. [Concomitant]
     Active Substance: MORPHINE SULFATE
     Indication: PRODUCT USED FOR UNKNOWN INDICATION
     Dosage: SKENAN L.P. 10 MG, MICROGRANULE AT EXTENDED RELEASE IN CAPSULE?(CETYL ALCOHOL, CORNSTARCH, DIBUTYLE
     Route: 065
  13. ZOPICLONE [Concomitant]
     Active Substance: ZOPICLONE
     Indication: PRODUCT USED FOR UNKNOWN INDICATION
     Dosage: ZOPICLONE ALTER 7,5 MG, COATED SCORED TABLET
     Route: 065

REACTIONS (1)
  - Tubulointerstitial nephritis [Recovering/Resolving]

NARRATIVE: CASE EVENT DATE: 20210513
